FAERS Safety Report 9120029 (Version 2)
Quarter: 2013Q1

REPORT INFORMATION
  Report Type: Spontaneous
  Country: CN (occurrence: None)
  Receive Date: 20130130
  Receipt Date: 20130206
  Transmission Date: 20140127
  Serious: Yes (Hospitalization)
  Sender: FDA-Public Use
  Company Number: DSA_62130_2013

PATIENT
  Age: 60 Year
  Sex: Male

DRUGS (4)
  1. 5-FU [Suspect]
     Indication: COLORECTAL CANCER
     Dosage: 400 MG/M2 (735 MG)
     Route: 040
     Dates: start: 20130108, end: 20130108
  2. BLINDED THERAPY [Suspect]
     Indication: COLORECTAL CANCER
     Route: 042
     Dates: start: 20130108, end: 20130108
  3. IRINOTECAN (IRINOTECAN) [Suspect]
     Indication: COLORECTAL CANCER
     Dosage: 180 MG/M2 (330 MG)
     Route: 042
     Dates: start: 20130108, end: 20130108
  4. LEUCOVORIN /00566701/ (LEUCOVORIN-FOLINIC ACID) [Suspect]
     Indication: COLORECTAL CANCER
     Route: 042
     Dates: start: 20130108, end: 20130108

REACTIONS (2)
  - Diarrhoea [None]
  - Metastases to thorax [None]
